FAERS Safety Report 9580980 (Version 1)
Quarter: 2013Q4

REPORT INFORMATION
  Report Type: Spontaneous
  Country: US (occurrence: US)
  Receive Date: 20131002
  Receipt Date: 20131002
  Transmission Date: 20140711
  Serious: No
  Sender: FDA-Public Use
  Company Number: US-PFIZER INC-2013278579

PATIENT
  Sex: Female

DRUGS (1)
  1. LATANOPROST [Suspect]
     Indication: GLAUCOMA
     Dosage: UNK
     Route: 047
     Dates: start: 201309

REACTIONS (3)
  - Anorectal disorder [Unknown]
  - Anorectal disorder [Unknown]
  - Anorectal discomfort [Unknown]
